FAERS Safety Report 23663094 (Version 1)
Quarter: 2024Q1

REPORT INFORMATION
  Report Type: Other
  Country: JP (occurrence: JP)
  Receive Date: 20240322
  Receipt Date: 20240322
  Transmission Date: 20240410
  Serious: Yes (Other)
  Sender: FDA-Public Use
  Company Number: JP-CHUGAI-2024008811

PATIENT
  Age: 49 Year
  Sex: Male
  Weight: 91.2 kg

DRUGS (7)
  1. ACTEMRA [Suspect]
     Active Substance: TOCILIZUMAB
     Indication: Castleman^s disease
     Dosage: 600 MILLIGRAM, ONCE/WEEK
     Route: 065
  2. PREDNISOLONE [Concomitant]
     Active Substance: PREDNISOLONE
     Indication: Castleman^s disease
     Dosage: 70 MILLIGRAM
  3. RITUXIMAB [Concomitant]
     Active Substance: RITUXIMAB
     Indication: Castleman^s disease
     Dosage: 750 MILLIGRAM
     Route: 065
  4. CYCLOSPORINE [Concomitant]
     Active Substance: CYCLOSPORINE
     Indication: Castleman^s disease
     Dosage: 500 MG/DAY
  5. RUXOLITINIB PHOSPHATE [Concomitant]
     Active Substance: RUXOLITINIB PHOSPHATE
     Indication: Castleman^s disease
     Dosage: 30 MILLIGRAM
  6. TOFACITINIB CITRATE [Concomitant]
     Active Substance: TOFACITINIB CITRATE
  7. UPADACITINIB [Concomitant]
     Active Substance: UPADACITINIB

REACTIONS (2)
  - COVID-19 [Recovering/Resolving]
  - Off label use [Unknown]
